FAERS Safety Report 15894831 (Version 1)
Quarter: 2019Q1

REPORT INFORMATION
  Report Type: Spontaneous
  Country: US (occurrence: US)
  Receive Date: 20190131
  Receipt Date: 20190131
  Transmission Date: 20190417
  Serious: Yes (Hospitalization, Other)
  Sender: FDA-Public Use
  Company Number: US-AMGEN-USASP2019014523

PATIENT
  Age: 62 Year
  Sex: Male

DRUGS (1)
  1. EPOETIN ALFA [Suspect]
     Active Substance: ERYTHROPOIETIN
     Indication: ANAEMIA
     Dosage: 20000 UNIT, QD (300 MG/KG)
     Route: 065

REACTIONS (11)
  - Bile duct obstruction [Unknown]
  - Glomerular filtration rate decreased [Unknown]
  - Depressed level of consciousness [Unknown]
  - Pseudomonas infection [Unknown]
  - Mental status changes [Unknown]
  - Neisseria infection [Unknown]
  - Blood urea increased [Unknown]
  - Blood creatinine increased [Unknown]
  - Urine output decreased [Unknown]
  - Transaminases increased [Unknown]
  - Off label use [Unknown]
